FAERS Safety Report 7249730-7 (Version None)
Quarter: 2010Q4

REPORT INFORMATION
  Report Type: 
  Country: None (occurrence: None)
  Receive Date: 20101209
  Receipt Date: 20101117
  Transmission Date: 20110411
  Serious: Yes (Hospitalization)
  Sender: FDA-Public Use
  Company Number: DE-021461

PATIENT
  Age: 73 Year
  Sex: Male

DRUGS (1)
  1. (CHLORAMBUCIL) [Suspect]
     Indication: CHRONIC LYMPHOCYTIC LEUKAEMIA
     Dosage: TABLET 10 MG/M2 10 MG/M2 QD ORAL
     Route: 048
     Dates: start: 20091013, end: 20091016

REACTIONS (1)
  - OTITIS MEDIA [None]
